FAERS Safety Report 13458767 (Version 3)
Quarter: 2017Q2

REPORT INFORMATION
  Report Type: Spontaneous
  Country: US (occurrence: US)
  Receive Date: 20170419
  Receipt Date: 20170512
  Transmission Date: 20170830
  Serious: Yes (Hospitalization, Other)
  Sender: FDA-Public Use
  Company Number: US-RARE DISEASE THERAPEUTICS, INC.-1065538

PATIENT
  Age: 4 Year
  Sex: Female
  Weight: 17.69 kg

DRUGS (16)
  1. DEXAMETHASONE. [Concomitant]
     Active Substance: DEXAMETHASONE
  2. LORAZEPAM. [Concomitant]
     Active Substance: LORAZEPAM
  3. EMLA [Concomitant]
     Active Substance: LIDOCAINE\PRILOCAINE
     Dates: start: 20150918
  4. POLYETHYLENE GLYCOL [Concomitant]
     Active Substance: POLYETHYLENE GLYCOLS
     Dates: start: 20151014
  5. BACTRIM [Concomitant]
     Active Substance: SULFAMETHOXAZOLE\TRIMETHOPRIM
     Dates: start: 20170228
  6. RISPERDAL [Concomitant]
     Active Substance: RISPERIDONE
     Dates: start: 20170228
  7. BENYLIN [Concomitant]
     Active Substance: DIPHENHYDRAMINE HYDROCHLORIDE
  8. ROXICODONE [Concomitant]
     Active Substance: OXYCODONE HYDROCHLORIDE
     Dates: start: 20160426
  9. WELLCOVORIN [Concomitant]
     Active Substance: LEUCOVORIN CALCIUM
     Dates: start: 20170103, end: 20170310
  10. ONDANSETRON [Concomitant]
     Active Substance: ONDANSETRON
  11. ZANTAC [Concomitant]
     Active Substance: RANITIDINE HYDROCHLORIDE
  12. PURIXAN [Suspect]
     Active Substance: MERCAPTOPURINE
     Indication: ACUTE LYMPHOCYTIC LEUKAEMIA
     Route: 048
     Dates: start: 20160426, end: 20170310
  13. METHOTREXATE. [Concomitant]
     Active Substance: METHOTREXATE
     Dates: start: 20170228, end: 20170310
  14. SIMETHICONE (DIMETHICONE) [Concomitant]
     Active Substance: DIMETHICONE
     Dates: start: 20150112
  15. PURIXAN [Suspect]
     Active Substance: MERCAPTOPURINE
     Route: 048
     Dates: start: 20170426
  16. PURIXAN [Suspect]
     Active Substance: MERCAPTOPURINE
     Route: 048
     Dates: start: 20170317, end: 20170425

REACTIONS (2)
  - Rhinovirus infection [Recovered/Resolved]
  - Febrile neutropenia [Recovered/Resolved]

NARRATIVE: CASE EVENT DATE: 20170310
